FAERS Safety Report 18651329 (Version 2)
Quarter: 2020Q4

REPORT INFORMATION
  Report Type: Report from Study
  Country: US (occurrence: US)
  Receive Date: 20201223
  Receipt Date: 20201225
  Transmission Date: 20210114
  Serious: Yes (Death, Hospitalization)
  Sender: FDA-Public Use
  Company Number: US-ROCHE-2714696

PATIENT
  Age: 45 Year
  Sex: Female
  Weight: 113.9 kg

DRUGS (19)
  1. SYNTHROID [Concomitant]
     Active Substance: LEVOTHYROXINE SODIUM
  2. PRILOSEC [Concomitant]
     Active Substance: OMEPRAZOLE MAGNESIUM
  3. TYLENOL [Concomitant]
     Active Substance: ACETAMINOPHEN
  4. EMLA [Concomitant]
     Active Substance: LIDOCAINE\PRILOCAINE
  5. POTASSIUM CHLORIDE. [Concomitant]
     Active Substance: POTASSIUM CHLORIDE
  6. ELIQUIS [Concomitant]
     Active Substance: APIXABAN
     Dates: start: 20190918
  7. KY1044 [Suspect]
     Active Substance: INVESTIGATIONAL PRODUCT
     Indication: CERVIX CARCINOMA
     Route: 042
     Dates: start: 20201027
  8. LIDOCAINE. [Concomitant]
     Active Substance: LIDOCAINE
  9. ROXICODONE [Concomitant]
     Active Substance: OXYCODONE HYDROCHLORIDE
  10. ATEZOLIZUMAB. [Suspect]
     Active Substance: ATEZOLIZUMAB
     Indication: CERVIX CARCINOMA
     Route: 042
     Dates: start: 20201027
  11. ANALPRAM-HC [Concomitant]
  12. LOPRESOR [Concomitant]
     Active Substance: METOPROLOL
  13. SENNA S [Concomitant]
     Active Substance: DOCUSATE SODIUM\SENNA LEAF
     Dates: start: 20190128
  14. ATIVAN [Concomitant]
     Active Substance: LORAZEPAM
  15. COMPAZINE [Concomitant]
     Active Substance: PROCHLORPERAZINE MALEATE
  16. KY1044 [Suspect]
     Active Substance: INVESTIGATIONAL PRODUCT
     Route: 042
     Dates: start: 20201027
  17. LEXAPRO [Concomitant]
     Active Substance: ESCITALOPRAM OXALATE
  18. ZOFRAN [Concomitant]
     Active Substance: ONDANSETRON HYDROCHLORIDE
  19. ZYPREXA [Concomitant]
     Active Substance: OLANZAPINE

REACTIONS (3)
  - Nausea [Not Recovered/Not Resolved]
  - Abdominal pain [Not Recovered/Not Resolved]
  - Myositis [Fatal]

NARRATIVE: CASE EVENT DATE: 20201103
